FAERS Safety Report 5730371-5 (Version None)
Quarter: 2008Q2

REPORT INFORMATION
  Report Type: 
  Country: None (occurrence: None)
  Receive Date: 20080502
  Receipt Date: 20080424
  Transmission Date: 20081010
  Serious: Yes (Life-Threatening)
  Sender: FDA-Public Use
  Company Number: 19208

PATIENT
  Sex: Female

DRUGS (1)
  1. PACLITAXEL [Suspect]

REACTIONS (6)
  - BACK PAIN [None]
  - BLINDNESS [None]
  - DYSPNOEA [None]
  - HYPOTENSION [None]
  - LOSS OF CONSCIOUSNESS [None]
  - TACHYCARDIA [None]
